FAERS Safety Report 16057946 (Version 2)
Quarter: 2019Q1

REPORT INFORMATION
  Report Type: Report from Study
  Country: ZA (occurrence: ZA)
  Receive Date: 20190311
  Receipt Date: 20190325
  Transmission Date: 20190418
  Serious: Yes (Hospitalization)
  Sender: FDA-Public Use
  Company Number: ZA-SA-2019SA002823

PATIENT
  Age: 68 Year
  Sex: Female

DRUGS (4)
  1. GLUCOPHAGE [Concomitant]
     Active Substance: METFORMIN HYDROCHLORIDE
     Dosage: 850 MG AT AS (AFTER SUPPER)
     Dates: start: 20150501
  2. GLUCOPHAGE [Concomitant]
     Active Substance: METFORMIN HYDROCHLORIDE
     Dosage: 850 UG AT AB (AFTER BREAKFAST)
     Dates: start: 20150501
  3. GALVUS MET [Concomitant]
     Active Substance: METFORMIN HYDROCHLORIDE\VILDAGLIPTIN
     Dosage: 500 MG, BID, AFTER SUPPER AND AFTER BREAKFAST
     Dates: start: 20181210
  4. INSULIN GLARGINE [Suspect]
     Active Substance: INSULIN GLARGINE
     Dosage: 22 U, HS AT BT (BED TIME)
     Dates: start: 20181218

REACTIONS (5)
  - Hip fracture [Not Recovered/Not Resolved]
  - Fall [Unknown]
  - Diarrhoea [Unknown]
  - Postoperative wound infection [Not Recovered/Not Resolved]
  - Glycosylated haemoglobin increased [Unknown]

NARRATIVE: CASE EVENT DATE: 20190314
